FAERS Safety Report 6651659-X (Version None)
Quarter: 2010Q1

REPORT INFORMATION
  Report Type: 
  Country: None (occurrence: None)
  Receive Date: 20100325
  Receipt Date: 20091027
  Transmission Date: 20100710
  Serious: No
  Sender: FDA-Public Use
  Company Number: US-SANOFI-AVENTIS-200917894US

PATIENT
  Age: 51 Year
  Sex: Female

DRUGS (3)
  1. OPTICLICK [Suspect]
  2. INSULIN GLULISINE [Suspect]
     Indication: DIABETES MELLITUS
     Dosage: DOSE:28 UNIT(S)
     Route: 051
  3. LANTUS [Suspect]
     Route: 058

REACTIONS (1)
  - DIZZINESS [None]
